FAERS Safety Report 19604765 (Version 1)
Quarter: 2021Q3

REPORT INFORMATION
  Report Type: Spontaneous
  Country: HK (occurrence: HK)
  Receive Date: 20210723
  Receipt Date: 20210723
  Transmission Date: 20211014
  Serious: Yes (Other)
  Sender: FDA-Public Use
  Company Number: HK-REGENERON PHARMACEUTICALS, INC.-2021-69855

PATIENT

DRUGS (4)
  1. PRALUENT [Suspect]
     Active Substance: ALIROCUMAB
     Indication: HYPERLIPIDAEMIA
     Dosage: UNK UNK, MONTHLY
     Route: 058
  2. REPATHA [Suspect]
     Active Substance: EVOLOCUMAB
     Dosage: UNK UNK, Q15D(SUBCUTANEOUS INJECTIONS EVERY 2 WEEKS)
     Route: 058
  3. REPATHA [Suspect]
     Active Substance: EVOLOCUMAB
     Dosage: UNK UNK, Q15D(SUBCUTANEOUS INJECTIONS EVERY 2 WEEKS)
     Route: 058
  4. REPATHA [Suspect]
     Active Substance: EVOLOCUMAB
     Indication: HYPERLIPIDAEMIA
     Dosage: UNK UNK, Q15D (SUBCUTANEOUS INJECTIONS EVERY 2 WEEKS)
     Route: 058

REACTIONS (6)
  - Injection site rash [Recovered/Resolved]
  - Type I hypersensitivity [Recovered/Resolved]
  - Immediate post-injection reaction [Recovered/Resolved]
  - Urticaria [Recovered/Resolved]
  - Cross sensitivity reaction [Recovered/Resolved]
  - Rash [Recovered/Resolved]
